FAERS Safety Report 15665803 (Version 1)
Quarter: 2018Q4

REPORT INFORMATION
  Report Type: Spontaneous
  Country: US (occurrence: US)
  Receive Date: 20181128
  Receipt Date: 20181128
  Transmission Date: 20190205
  Serious: No
  Sender: FDA-Public Use
  Company Number: US-PFIZER INC-2018475886

PATIENT
  Age: 64 Year
  Sex: Female
  Weight: 108.84 kg

DRUGS (1)
  1. LYRICA [Suspect]
     Active Substance: PREGABALIN
     Indication: SPINAL OSTEOARTHRITIS
     Dosage: 100 MG, 2X/DAY
     Dates: end: 201810

REACTIONS (5)
  - Pain [Unknown]
  - Dizziness [Unknown]
  - Feeling abnormal [Unknown]
  - Withdrawal syndrome [Unknown]
  - Nausea [Unknown]
